FAERS Safety Report 12707482 (Version 2)
Quarter: 2016Q3

REPORT INFORMATION
  Report Type: Report from Study
  Country: CA (occurrence: CA)
  Receive Date: 20160901
  Receipt Date: 20160907
  Transmission Date: 20161109
  Serious: Yes (Other)
  Sender: FDA-Public Use
  Company Number: PHHY2016CA119985

PATIENT
  Age: 51 Year
  Sex: Female

DRUGS (1)
  1. GILENYA [Suspect]
     Active Substance: FINGOLIMOD HYDROCHLORIDE
     Indication: PRODUCT USED FOR UNKNOWN INDICATION
     Dosage: UNK
     Route: 048
     Dates: start: 20160224

REACTIONS (12)
  - Myelitis [Unknown]
  - Urinary incontinence [Unknown]
  - Eyelid oedema [Unknown]
  - Swelling face [Unknown]
  - Nausea [Unknown]
  - Pruritus [Unknown]
  - Sensory disturbance [Unknown]
  - Furuncle [Unknown]
  - Paraparesis [Unknown]
  - Dysaesthesia [Unknown]
  - Mobility decreased [Unknown]
  - Ataxia [Unknown]

NARRATIVE: CASE EVENT DATE: 20160830
